FAERS Safety Report 20439133 (Version 1)
Quarter: 2022Q1

REPORT INFORMATION
  Report Type: Report from Study
  Country: US (occurrence: US)
  Receive Date: 20220207
  Receipt Date: 20220207
  Transmission Date: 20220423
  Serious: Yes (Hospitalization)
  Sender: FDA-Public Use
  Company Number: US-PHARMACOVIGILANCE-US-KAD-22-00116

PATIENT
  Sex: Male

DRUGS (2)
  1. BELUMOSUDIL [Suspect]
     Active Substance: BELUMOSUDIL
     Dosage: 200 MILLIGRAM, QD
     Dates: end: 202201
  2. BELUMOSUDIL [Suspect]
     Active Substance: BELUMOSUDIL
     Dosage: 200 MILLIGRAM, QD
     Dates: start: 20220110

REACTIONS (1)
  - COVID-19 [Recovering/Resolving]
